FAERS Safety Report 6161387-5 (Version None)
Quarter: 2009Q2

REPORT INFORMATION
  Report Type: 
  Country: None (occurrence: None)
  Receive Date: 20090421
  Receipt Date: 20071106
  Transmission Date: 20091009
  Serious: Yes (Other)
  Sender: FDA-Public Use
  Company Number: US-ASTRAZENECA-2007UW05865

PATIENT
  Age: 12725 Day
  Sex: Female
  Weight: 93 kg

DRUGS (12)
  1. SEROQUEL [Suspect]
     Indication: DEPRESSION
     Route: 048
     Dates: start: 19990101, end: 20060101
  2. SEROQUEL [Suspect]
     Route: 048
     Dates: start: 20050329
  3. BIAXIN [Concomitant]
  4. PROTONIX [Concomitant]
  5. GLUCOTROL [Concomitant]
  6. LIPITOR [Concomitant]
  7. EFFEXOR [Concomitant]
  8. PHENERGAN [Concomitant]
  9. PREMARIN [Concomitant]
  10. LISINOPRIL [Concomitant]
  11. ALBUTEROL [Concomitant]
  12. FLEXERIL [Concomitant]

REACTIONS (10)
  - BLOOD CHOLESTEROL INCREASED [None]
  - BRONCHITIS [None]
  - DIABETES MELLITUS [None]
  - DYSPEPSIA [None]
  - GASTRIC DISORDER [None]
  - KETOACIDOSIS [None]
  - MUSCULOSKELETAL PAIN [None]
  - OEDEMA PERIPHERAL [None]
  - PANCREATITIS [None]
  - TYPE 2 DIABETES MELLITUS [None]
